FAERS Safety Report 5921858-0 (Version None)
Quarter: 2008Q4

REPORT INFORMATION
  Report Type: 
  Country: None (occurrence: None)
  Receive Date: 20081017
  Receipt Date: 20081015
  Transmission Date: 20090506
  Serious: Yes (Hospitalization)
  Sender: FDA-Public Use
  Company Number: PHHO2000DE01479

PATIENT
  Sex: Male
  Weight: 108 kg

DRUGS (2)
  1. MYCOPHENOLIC ACID [Suspect]
     Indication: RENAL TRANSPLANT
     Dosage: 720 MG, BID
     Route: 048
     Dates: start: 19990716, end: 20000403
  2. NEORAL [Suspect]

REACTIONS (3)
  - DRUG INEFFECTIVE [None]
  - DRUG TOXICITY [None]
  - TRANSPLANT REJECTION [None]
